FAERS Safety Report 8478379-3 (Version None)
Quarter: 2012Q2

REPORT INFORMATION
  Report Type: 
  Country: None (occurrence: None)
  Receive Date: 20120629
  Receipt Date: 20070803
  Transmission Date: 20120825
  Serious: Yes (Other)
  Sender: FDA-Public Use
  Company Number: US-ROCHE-GNE245633

PATIENT
  Sex: Female
  Weight: 70.37 kg

DRUGS (3)
  1. SYNTHROID [Concomitant]
     Indication: PRODUCT USED FOR UNKNOWN INDICATION
  2. NUTROPIN AQ [Suspect]
     Indication: GROWTH HORMONE DEFICIENCY
     Dosage: 3 MG, QD
     Route: 058
     Dates: start: 20061001
  3. NUTROPIN AQ [Suspect]
     Dosage: 1.2 MG, QD
     Route: 058

REACTIONS (2)
  - OCULAR NEOPLASM [None]
  - ANGER [None]
